FAERS Safety Report 13338871 (Version 1)
Quarter: 2017Q1

REPORT INFORMATION
  Report Type: Spontaneous
  Country: PT (occurrence: PT)
  Receive Date: 20170315
  Receipt Date: 20170315
  Transmission Date: 20170428
  Serious: Yes (Other)
  Sender: FDA-Public Use
  Company Number: PT-ASTRAZENECA-2017SE26941

PATIENT
  Age: 67 Year
  Sex: Female

DRUGS (2)
  1. ACLIDINIUM BROMIDE [Suspect]
     Active Substance: ACLIDINIUM BROMIDE
     Indication: CHRONIC OBSTRUCTIVE PULMONARY DISEASE
     Dosage: ONE INHALATION TWICE DAILY
     Route: 055
     Dates: start: 20160704, end: 20170126
  2. PERINDOPRIL [Concomitant]
     Active Substance: PERINDOPRIL
     Indication: HYPERTENSION
     Route: 065

REACTIONS (6)
  - Chest pain [Unknown]
  - Drug dose omission [Unknown]
  - Dyspnoea [Unknown]
  - Throat irritation [Unknown]
  - Diarrhoea [Unknown]
  - Oral discomfort [Unknown]

NARRATIVE: CASE EVENT DATE: 20161107
